FAERS Safety Report 5348875-6 (Version None)
Quarter: 2007Q2

REPORT INFORMATION
  Report Type: 
  Country: None (occurrence: None)
  Receive Date: 20070607
  Receipt Date: 20070528
  Transmission Date: 20071010
  Serious: Yes (Other)
  Sender: FDA-Public Use
  Company Number: PHBS2007JP08935

PATIENT
  Age: 54 Year
  Sex: Male

DRUGS (1)
  1. TOFRANIL [Suspect]
     Dosage: 25 MG/D
     Route: 048
     Dates: start: 20060501, end: 20060501

REACTIONS (1)
  - LIVER DISORDER [None]
